FAERS Safety Report 8594938-1 (Version None)
Quarter: 2012Q3

REPORT INFORMATION
  Report Type: 
  Country: None (occurrence: None)
  Receive Date: 20120815
  Receipt Date: 20120801
  Transmission Date: 20120928
  Serious: No
  Sender: FDA-Public Use
  Company Number: US-B.I. PHARMACEUTICALS,INC./RIDGEFIELD-2012-BP-17345BP

PATIENT
  Sex: Male

DRUGS (2)
  1. SPIRIVA [Suspect]
     Indication: TOBACCO USER
     Dosage: 18 MCG
     Route: 055
     Dates: start: 20050101
  2. PRIMATENE MIST [Concomitant]
     Indication: DYSPNOEA
     Dosage: 200 MG
     Route: 048
     Dates: start: 20040101

REACTIONS (3)
  - ERECTILE DYSFUNCTION [None]
  - DYSPNOEA [None]
  - HYPERTENSION [None]
